FAERS Safety Report 8271242-2 (Version None)
Quarter: 2012Q2

REPORT INFORMATION
  Report Type: 
  Country: None (occurrence: None)
  Receive Date: 20120410
  Receipt Date: 20120405
  Transmission Date: 20120825
  Serious: Yes (Disabling, Other)
  Sender: FDA-Public Use
  Company Number: FI-PFIZER INC-2012062011

PATIENT
  Age: 55 Year
  Sex: Female

DRUGS (12)
  1. BUPROPION HYDROCHLORIDE [Concomitant]
     Dosage: 150 MG, 1X/DAY
     Dates: start: 20111213, end: 20120209
  2. BUPROPION HYDROCHLORIDE [Concomitant]
     Dosage: 300 MG, 1X/DAY
     Dates: start: 20120210
  3. PANACOD [Concomitant]
  4. EFFEXOR [Suspect]
     Dosage: 300 MG, 1X/DAY
     Dates: start: 20100311, end: 20111212
  5. EFFEXOR [Suspect]
     Dosage: 75 MG, EVERY OTHER DAY FOR 7 DAYS
     Dates: start: 20120217, end: 20120229
  6. EFFEXOR [Suspect]
     Dosage: 225 MG, 1X/DAY
     Dates: start: 20100211, end: 20100310
  7. EFFEXOR [Suspect]
     Dosage: 75 MG, 1X/DAY
     Dates: start: 20120210, end: 20120216
  8. LOSARTAN [Concomitant]
  9. EFFEXOR [Suspect]
     Dosage: 150 MG, 1X/DAY
     Dates: start: 20091103, end: 20100210
  10. EFFEXOR [Suspect]
     Indication: DEPRESSION
     Dosage: 75 MG, 1X/DAY
     Dates: start: 20091027, end: 20091102
  11. EFFEXOR [Suspect]
     Dosage: 150 MG, 1X/DAY
     Dates: start: 20111213, end: 20120209
  12. BISOPROLOL FUMARATE [Concomitant]

REACTIONS (6)
  - BEDRIDDEN [None]
  - WITHDRAWAL SYNDROME [None]
  - DIARRHOEA [None]
  - PARAESTHESIA [None]
  - VISUAL IMPAIRMENT [None]
  - DIZZINESS [None]
